FAERS Safety Report 5064702-9 (Version None)
Quarter: 2006Q3

REPORT INFORMATION
  Report Type: 
  Country: None (occurrence: None)
  Receive Date: 20060728
  Receipt Date: 20060725
  Transmission Date: 20061208
  Serious: Yes (Death)
  Sender: FDA-Public Use
  Company Number: FR-GLAXOSMITHKLINE-B0432024A

PATIENT
  Sex: Female
  Weight: 0.8 kg

DRUGS (8)
  1. CLAMOXYL IV [Suspect]
     Route: 042
     Dates: start: 20060322, end: 20060324
  2. CLAMOXYL [Suspect]
     Dosage: 3G PER DAY
     Dates: start: 20060316, end: 20060318
  3. GENTAMICIN [Suspect]
     Route: 042
     Dates: start: 20060322, end: 20060323
  4. GENTAMICIN [Suspect]
     Dates: start: 20060316, end: 20060318
  5. TIENAM [Suspect]
     Route: 042
     Dates: start: 20060322, end: 20060324
  6. TIENAM [Suspect]
     Dates: start: 20060316, end: 20060318
  7. IBUPROFEN [Suspect]
     Indication: PATENT DUCTUS ARTERIOSUS
     Dosage: 6.6MG CUMULATIVE DOSE
     Route: 042
     Dates: start: 20060323, end: 20060325
  8. CLAFORAN [Concomitant]
     Dates: start: 20060213, end: 20060217

REACTIONS (15)
  - ANURIA [None]
  - BLOOD PRESSURE DECREASED [None]
  - BRONCHIAL OBSTRUCTION [None]
  - CARDIAC FAILURE [None]
  - CARDIOPULMONARY FAILURE [None]
  - CHORIOAMNIONITIS [None]
  - DRUG EXPOSURE DURING PREGNANCY [None]
  - HAEMODYNAMIC INSTABILITY [None]
  - INTERSTITIAL LUNG DISEASE [None]
  - PULMONARY FUNCTION TEST DECREASED [None]
  - PULMONARY HYPERTENSION [None]
  - RENAL FAILURE ACUTE [None]
  - RENAL IMPAIRMENT [None]
  - STAPHYLOCOCCAL SEPSIS [None]
  - WEIGHT DECREASED [None]
